FAERS Safety Report 7608142-4 (Version None)
Quarter: 2011Q3

REPORT INFORMATION
  Report Type: 
  Country: None (occurrence: None)
  Receive Date: 20110706
  Receipt Date: 20110628
  Transmission Date: 20111222
  Serious: Yes (Hospitalization)
  Sender: FDA-Public Use
  Company Number: SEL-11-01

PATIENT
  Age: 58 Year
  Sex: Female

DRUGS (4)
  1. LEVODOPA/CARBIDOPA/ENTACAPONE [Concomitant]
  2. SELEGILINE [Suspect]
     Indication: PARKINSON'S DISEASE
     Dosage: 5MG/DAY
  3. LEVODOPA/BENSERAZIDE [Concomitant]
  4. TRIHEXYPHENIDYL [Concomitant]

REACTIONS (5)
  - ACTIVITIES OF DAILY LIVING IMPAIRED [None]
  - PAIN IN EXTREMITY [None]
  - CONDITION AGGRAVATED [None]
  - HAND DEFORMITY [None]
  - PARKINSONISM [None]
